FAERS Safety Report 10278660 (Version 1)
Quarter: 2014Q3

REPORT INFORMATION
  Report Type: Spontaneous
  Country: US (occurrence: US)
  Receive Date: 20140704
  Receipt Date: 20140704
  Transmission Date: 20150326
  Serious: No
  Sender: FDA-Public Use
  Company Number: US-009507513-1407USA001041

PATIENT

DRUGS (1)
  1. INTEGRILIN [Suspect]
     Active Substance: EPTIFIBATIDE
     Indication: THROMBOSIS PROPHYLAXIS
     Dosage: INTEGRILIN WAS USED FOR 12 HOURS (ONE TIME ONLY), DOSAGE UNSPECIFIED (HALF OF THE CORONARY DOSE).
     Route: 042
     Dates: start: 201406, end: 201406

REACTIONS (3)
  - No adverse event [Unknown]
  - Drug administration error [Unknown]
  - Drug administered at inappropriate site [Unknown]

NARRATIVE: CASE EVENT DATE: 201406
